FAERS Safety Report 15924410 (Version 2)
Quarter: 2019Q1

REPORT INFORMATION
  Report Type: Spontaneous
  Country: IT (occurrence: IT)
  Receive Date: 20190206
  Receipt Date: 20190302
  Transmission Date: 20190417
  Serious: Yes (Other)
  Sender: FDA-Public Use
  Company Number: IT-ACCORD-105811

PATIENT
  Age: 77 Year
  Sex: Female
  Weight: 66 kg

DRUGS (4)
  1. TORVAST [Suspect]
     Active Substance: ATORVASTATIN
     Indication: DISEASE RISK FACTOR
     Dates: start: 20180101
  2. TAVOR [Concomitant]
     Indication: GENERALISED ANXIETY DISORDER
     Dates: start: 20180101
  3. ASPIRINETTA [Suspect]
     Active Substance: ASPIRIN
     Indication: DISEASE RISK FACTOR
     Dates: start: 20180101
  4. PIOGLITAZONE/PIOGLITAZONE HYDROCHLORIDE [Suspect]
     Active Substance: PIOGLITAZONE HYDROCHLORIDE
     Indication: TYPE 2 DIABETES MELLITUS
     Dates: start: 20180416, end: 20180503

REACTIONS (2)
  - Dyspnoea exertional [Recovered/Resolved]
  - Pain [Recovered/Resolved]

NARRATIVE: CASE EVENT DATE: 20180430
